FAERS Safety Report 10257200 (Version 1)
Quarter: 2014Q2

REPORT INFORMATION
  Report Type: Spontaneous
  Country: US (occurrence: None)
  Receive Date: 20140623
  Receipt Date: 20140623
  Transmission Date: 20141212
  Serious: Yes (Other)
  Sender: FDA-Public Use
  Company Number: None

PATIENT
  Age: 58 Year
  Sex: Female
  Weight: 102.06 kg

DRUGS (12)
  1. PRO AIR HFA - 90 MCG ALBUTEROL PER ACTUATION MANUFACTURED IN IRELAND - MARKETD BY TEVA [Suspect]
  2. COMBIVENT RESPIMAT [Concomitant]
  3. SYMBICORT [Concomitant]
  4. GABAPENTIN [Concomitant]
  5. HYDROXYCHLOROQUINE [Concomitant]
  6. LEFLUNOMIDE [Concomitant]
  7. OMEPRAZOLE [Concomitant]
  8. VITAMIN B [Concomitant]
  9. D3 [Concomitant]
  10. CALCIUM [Concomitant]
  11. FLAXSEED [Concomitant]
  12. BAYER ASPIRIN [Concomitant]

REACTIONS (6)
  - Anxiety [None]
  - Insomnia [None]
  - Throat irritation [None]
  - Drug effect decreased [None]
  - Product quality issue [None]
  - Fear [None]
